FAERS Safety Report 8153464-4 (Version None)
Quarter: 2012Q1

REPORT INFORMATION
  Report Type: 
  Country: None (occurrence: None)
  Receive Date: 20120221
  Receipt Date: 20120214
  Transmission Date: 20120608
  Serious: Yes (Hospitalization)
  Sender: FDA-Public Use
  Company Number: CA-B.I. PHARMACEUTICALS,INC./RIDGEFIELD-2012-CN-00322CN

PATIENT
  Age: 65 Year
  Sex: Male
  Weight: 49.9 kg

DRUGS (8)
  1. CLONIDINE [Concomitant]
     Route: 065
  2. LASIX [Concomitant]
     Route: 065
  3. POTASSIUM CHLORIDE [Concomitant]
     Route: 065
  4. SPIRIVA [Concomitant]
     Route: 055
  5. PRADAXA [Suspect]
     Dosage: 300 MG
     Route: 065
  6. ADVAIR DISKUS 100/50 [Concomitant]
     Route: 055
  7. DILTIAZEM HCL [Concomitant]
     Route: 065
  8. LIPITOR [Concomitant]
     Route: 065

REACTIONS (4)
  - ANAEMIA [None]
  - ECCHYMOSIS [None]
  - GASTRIC ULCER [None]
  - OESOPHAGEAL LESION EXCISION [None]
